FAERS Safety Report 10015822 (Version 2)
Quarter: 2014Q2

REPORT INFORMATION
  Report Type: Spontaneous
  Country: US (occurrence: US)
  Receive Date: 20140317
  Receipt Date: 20140522
  Transmission Date: 20141212
  Serious: Yes (Hospitalization)
  Sender: FDA-Public Use
  Company Number: US-GLAXOSMITHKLINE-A1064967A

PATIENT
  Age: 55 Year
  Sex: Male

DRUGS (7)
  1. ADVAIR [Suspect]
     Indication: CHRONIC OBSTRUCTIVE PULMONARY DISEASE
     Dosage: 1PUFF TWICE PER DAY
     Route: 055
     Dates: start: 201305
  2. LISINOPRIL [Concomitant]
  3. HYDROCHLOROTHIAZIDE [Concomitant]
  4. PRO-AIR [Concomitant]
  5. ALBUTEROL [Concomitant]
  6. VITAMIN B1 [Concomitant]
  7. VITAMIN [Concomitant]

REACTIONS (4)
  - Chronic obstructive pulmonary disease [Recovered/Resolved]
  - Hyperventilation [Recovered/Resolved]
  - Coma [Recovered/Resolved]
  - Pneumothorax [Recovered/Resolved]
